FAERS Safety Report 7419872-1 (Version None)
Quarter: 2011Q2

REPORT INFORMATION
  Report Type: 
  Country: None (occurrence: None)
  Receive Date: 20110413
  Receipt Date: 20110413
  Transmission Date: 20111010
  Serious: No
  Sender: FDA-Public Use
  Company Number: None

PATIENT
  Sex: Male
  Weight: 65.7716 kg

DRUGS (2)
  1. TAMSULOSIN HCL [Suspect]
     Indication: PROSTATIC DISORDER
     Dosage: 0.4 MG CAPSULE ONE BEDTIME
     Dates: start: 20110322, end: 20110331
  2. FINASTERIDE [Suspect]

REACTIONS (5)
  - ASTHENIA [None]
  - DIZZINESS [None]
  - ABDOMINAL DISCOMFORT [None]
  - FALL [None]
  - RETCHING [None]
